FAERS Safety Report 9105516 (Version 1)
Quarter: 2013Q1

REPORT INFORMATION
  Report Type: Spontaneous
  Country: IN (occurrence: IN)
  Receive Date: 20130220
  Receipt Date: 20130220
  Transmission Date: 20140127
  Serious: Yes (Death, Hospitalization)
  Sender: FDA-Public Use
  Company Number: IN-PFIZER INC-2013062073

PATIENT
  Age: 61 Year
  Sex: Male

DRUGS (1)
  1. SUTENT [Suspect]
     Indication: METASTATIC RENAL CELL CARCINOMA
     Dosage: 50 MG, 1X/DAY
     Route: 048
     Dates: start: 20121223, end: 201301

REACTIONS (5)
  - Cardiac disorder [Fatal]
  - Dyspnoea [Not Recovered/Not Resolved]
  - Hypotension [Unknown]
  - Disease progression [Unknown]
  - Metastatic renal cell carcinoma [Unknown]
